FAERS Safety Report 14453499 (Version 1)
Quarter: 2018Q1

REPORT INFORMATION
  Report Type: Spontaneous
  Country: US (occurrence: US)
  Receive Date: 20180127
  Receipt Date: 20180127
  Transmission Date: 20180509
  Serious: Yes (Disabling)
  Sender: FDA-Public Use
  Company Number: None

PATIENT
  Sex: Female
  Weight: 85.05 kg

DRUGS (5)
  1. DOXYCYCLINE. [Suspect]
     Active Substance: DOXYCYCLINE
     Indication: NASOPHARYNGITIS
     Dosage: ?          QUANTITY:10 TABLET(S);?
     Route: 048
  2. BENADRYL [Concomitant]
     Active Substance: DIPHENHYDRAMINE HYDROCHLORIDE
  3. MELATONIN [Concomitant]
     Active Substance: MELATONIN
  4. MULTIVITAMIN [Concomitant]
     Active Substance: VITAMINS
  5. DOXYCYCLINE. [Suspect]
     Active Substance: DOXYCYCLINE
     Indication: OROPHARYNGEAL PAIN
     Dosage: ?          QUANTITY:10 TABLET(S);?
     Route: 048

REACTIONS (2)
  - Hypersensitivity [None]
  - Prescription drug used without a prescription [None]

NARRATIVE: CASE EVENT DATE: 20180127
